FAERS Safety Report 10333533 (Version 1)
Quarter: 2014Q3

REPORT INFORMATION
  Report Type: Spontaneous
  Country: GB (occurrence: GB)
  Receive Date: 20140722
  Receipt Date: 20140722
  Transmission Date: 20150326
  Serious: Yes (Other)
  Sender: FDA-Public Use
  Company Number: GB-ELI_LILLY_AND_COMPANY-GB201407006326

PATIENT
  Age: 62 Year
  Sex: Female

DRUGS (4)
  1. OLANZAPINE. [Suspect]
     Active Substance: OLANZAPINE
     Indication: BIPOLAR I DISORDER
     Route: 065
  2. PAROXETINE [Concomitant]
     Active Substance: PAROXETINE\PAROXETINE HYDROCHLORIDE
     Indication: PRODUCT USED FOR UNKNOWN INDICATION
  3. AMISULPRIDE [Suspect]
     Active Substance: AMISULPRIDE
     Indication: BIPOLAR I DISORDER
  4. LORAZEPAM. [Concomitant]
     Active Substance: LORAZEPAM
     Indication: PRODUCT USED FOR UNKNOWN INDICATION

REACTIONS (7)
  - Generalised tonic-clonic seizure [Recovered/Resolved]
  - Headache [Recovered/Resolved]
  - Intervertebral disc protrusion [Recovered/Resolved]
  - CSF pressure decreased [Recovered/Resolved]
  - Dural tear [Recovered/Resolved]
  - Cerebrospinal fluid leakage [Recovered/Resolved]
  - Intervertebral disc compression [Recovered/Resolved]
